FAERS Safety Report 18475701 (Version 1)
Quarter: 2020Q4

REPORT INFORMATION
  Report Type: Spontaneous
  Country: US (occurrence: US)
  Receive Date: 20201106
  Receipt Date: 20201106
  Transmission Date: 20210114
  Serious: No
  Sender: FDA-Public Use
  Company Number: US-LEUCADIA PHARMACEUTICALS-2020LEU000252

PATIENT

DRUGS (5)
  1. VALRUBICIN [Suspect]
     Active Substance: VALRUBICIN
     Dosage: UNK
     Route: 043
     Dates: start: 20200812, end: 20200812
  2. VALRUBICIN [Suspect]
     Active Substance: VALRUBICIN
     Indication: BLADDER CANCER
     Dosage: UNK
     Route: 043
     Dates: start: 20200722, end: 20200722
  3. SIMVASTATIN. [Concomitant]
     Active Substance: SIMVASTATIN
     Indication: PRODUCT USED FOR UNKNOWN INDICATION
     Dosage: UNK
     Route: 065
  4. GABAPENTIN. [Concomitant]
     Active Substance: GABAPENTIN
     Indication: PRODUCT USED FOR UNKNOWN INDICATION
     Dosage: UNK
  5. LISINOPRIL. [Concomitant]
     Active Substance: LISINOPRIL
     Indication: PRODUCT USED FOR UNKNOWN INDICATION
     Dosage: UNK
     Route: 065

REACTIONS (6)
  - Product substitution issue [Unknown]
  - Bladder pain [Recovered/Resolved]
  - Micturition urgency [Not Recovered/Not Resolved]
  - Discomfort [Not Recovered/Not Resolved]
  - Bladder pain [Not Recovered/Not Resolved]
  - Pollakiuria [Not Recovered/Not Resolved]

NARRATIVE: CASE EVENT DATE: 202008
